FAERS Safety Report 8871845 (Version 1)
Quarter: 2012Q4

REPORT INFORMATION
  Report Type: Spontaneous
  Country: US (occurrence: None)
  Receive Date: 20121024
  Receipt Date: 20121024
  Transmission Date: 20130627
  Serious: Yes (Other)
  Sender: FDA-Public Use
  Company Number: 2012MA012581

PATIENT
  Sex: Female

DRUGS (2)
  1. ROPINIROLE [Suspect]
  2. REQUIP [Concomitant]

REACTIONS (1)
  - Hypersensitivity [None]
